FAERS Safety Report 9195228 (Version 1)
Quarter: 2013Q1

REPORT INFORMATION
  Report Type: Spontaneous
  Country: US (occurrence: US)
  Receive Date: 20130328
  Receipt Date: 20130328
  Transmission Date: 20140127
  Serious: No
  Sender: FDA-Public Use
  Company Number: US-ALLERGAN-1217003US

PATIENT
  Age: 55 Year
  Sex: Female

DRUGS (9)
  1. LATISSE 0.03% [Suspect]
     Indication: GROWTH OF EYELASHES
     Dosage: 2 GTT, QHS
     Route: 061
     Dates: start: 201211
  2. LANOXIN [Concomitant]
     Indication: TACHYCARDIA
     Dosage: .25 MG, QD
     Route: 048
     Dates: start: 1992
  3. ASACOL [Concomitant]
     Indication: CROHN^S DISEASE
     Dosage: 2400 MG, BID
     Route: 048
     Dates: start: 1998
  4. EVISTA                             /01303201/ [Concomitant]
     Indication: OSTEOPENIA
     Dosage: 60 MG, QD
     Route: 048
     Dates: start: 201206
  5. ALLEGRA                            /01314201/ [Concomitant]
     Indication: RHINITIS ALLERGIC
     Dosage: UNK UNK, QD
     Route: 048
     Dates: start: 1992
  6. GEMFIBROZIL [Concomitant]
     Indication: BLOOD CHOLESTEROL INCREASED
     Dosage: 600 MG, BID
     Route: 048
     Dates: start: 2009
  7. MVI [Concomitant]
     Indication: SUPPLEMENTATION THERAPY
     Dosage: UNK UNK, QD
     Route: 048
  8. FISH OIL [Concomitant]
     Indication: SUPPLEMENTATION THERAPY
     Dosage: UNK UNK, QD
     Route: 048
  9. CALCIUM [Concomitant]
     Indication: SUPPLEMENTATION THERAPY
     Dosage: UNK UNK, QD
     Route: 048

REACTIONS (5)
  - Blepharospasm [Recovering/Resolving]
  - Eye irritation [Recovered/Resolved]
  - Dry eye [Recovered/Resolved]
  - Eye pruritus [Recovered/Resolved]
  - Ocular hyperaemia [Recovered/Resolved]
